FAERS Safety Report 21583265 (Version 1)
Quarter: 2022Q4

REPORT INFORMATION
  Report Type: Report from Study
  Country: EG (occurrence: EG)
  Receive Date: 20221111
  Receipt Date: 20221111
  Transmission Date: 20230113
  Serious: Yes (Other)
  Sender: FDA-Public Use
  Company Number: EG-002147023-NVSC2022EG251208

PATIENT
  Age: 40 Year
  Sex: Female

DRUGS (2)
  1. HYRIMOZ [Suspect]
     Active Substance: ADALIMUMAB-ADAZ
     Indication: Rheumatoid arthritis
     Dosage: UNK
     Route: 065
     Dates: start: 20220329, end: 20220705
  2. MULTIRELAX [Concomitant]
     Indication: Fibromyalgia
     Dosage: UNK, QD, (ONCE DAILY AT BEDTIME)
     Route: 065
     Dates: start: 202202

REACTIONS (3)
  - Breast cancer [Not Recovered/Not Resolved]
  - Pain in extremity [Recovering/Resolving]
  - Movement disorder [Recovering/Resolving]

NARRATIVE: CASE EVENT DATE: 20220701
